FAERS Safety Report 4876726-2 (Version None)
Quarter: 2006Q1

REPORT INFORMATION
  Report Type: 
  Country: None (occurrence: None)
  Receive Date: 20060110
  Receipt Date: 20051213
  Transmission Date: 20060701
  Serious: Yes (Hospitalization)
  Sender: FDA-Public Use
  Company Number: US-MERCK-0512USA02136

PATIENT
  Age: 80 Year
  Sex: Male
  Weight: 62 kg

DRUGS (21)
  1. VIOXX [Suspect]
     Indication: ANALGESIC EFFECT
     Route: 048
     Dates: start: 20020830, end: 20041002
  2. LIPITOR [Concomitant]
     Route: 065
  3. NORVASC [Concomitant]
     Route: 065
  4. PRILOSEC [Concomitant]
     Route: 065
  5. SYNTHROID [Concomitant]
     Route: 065
  6. CITRUCEL [Concomitant]
     Route: 065
  7. NEXIUM [Concomitant]
     Route: 065
  8. PROPULSID [Concomitant]
     Route: 065
  9. ZANTAC [Concomitant]
     Route: 065
  10. DOXYCYCLINE [Concomitant]
     Route: 065
  11. [THERAPY UNSPECIFIED] [Concomitant]
     Route: 065
  12. PEN-VEE K [Concomitant]
     Route: 065
  13. MEVACOR [Concomitant]
     Route: 065
  14. NITROGLYCERIN [Concomitant]
     Route: 065
  15. PLAVIX [Concomitant]
     Route: 065
  16. REGLAN [Concomitant]
     Route: 065
  17. SULFAMETHOXAZOLE AND TRIMETHOPRIM [Concomitant]
     Route: 065
  18. ASPIRIN [Concomitant]
     Route: 065
  19. ANTIOXIDANTS (UNSPECIFIED) [Concomitant]
     Route: 065
  20. GASTROINTESTINAL PREPARATIONS (UNSPECIFIED) [Concomitant]
     Route: 065
  21. CHROMIUM PICOLINATE [Concomitant]
     Route: 065

REACTIONS (17)
  - ABDOMINAL PAIN [None]
  - ABDOMINAL PAIN UPPER [None]
  - ANGINA PECTORIS [None]
  - ARTHRALGIA [None]
  - BACK PAIN [None]
  - BENIGN PROSTATIC HYPERPLASIA [None]
  - CARDIOVASCULAR DISORDER [None]
  - CHEST DISCOMFORT [None]
  - CHEST PAIN [None]
  - CHOLECYSTITIS [None]
  - CORONARY ARTERY OCCLUSION [None]
  - DIABETIC NEUROPATHY [None]
  - HYPERCHOLESTEROLAEMIA [None]
  - IMPAIRED GASTRIC EMPTYING [None]
  - PRESBYOESOPHAGUS [None]
  - SINUS DISORDER [None]
  - SPINAL COLUMN STENOSIS [None]
